FAERS Safety Report 6197363-6 (Version None)
Quarter: 2009Q2

REPORT INFORMATION
  Report Type: 
  Country: None (occurrence: None)
  Receive Date: 20090521
  Receipt Date: 20090518
  Transmission Date: 20091009
  Serious: Yes (Other)
  Sender: FDA-Public Use
  Company Number: US-ASTRAZENECA-2009UW12776

PATIENT
  Age: 67 Year
  Sex: Female

DRUGS (3)
  1. ARIMIDEX [Suspect]
     Route: 048
     Dates: start: 20071101
  2. BLOOD PRESSURE MEDICATION [Concomitant]
  3. DIABETES MEDICATION [Concomitant]

REACTIONS (3)
  - DIABETES MELLITUS [None]
  - MUSCLE SPASMS [None]
  - WEIGHT INCREASED [None]
